FAERS Safety Report 6996627-3 (Version None)
Quarter: 2010Q3

REPORT INFORMATION
  Report Type: 
  Country: None (occurrence: None)
  Receive Date: 20100918
  Receipt Date: 20090428
  Transmission Date: 20110219
  Serious: No
  Sender: FDA-Public Use
  Company Number: US-WYE-H09161309

PATIENT
  Age: 72 Year
  Sex: Male
  Weight: 127.12 kg

DRUGS (4)
  1. ALAVERT [Suspect]
     Indication: SEASONAL ALLERGY
     Route: 048
  2. GLYBURIDE [Concomitant]
  3. SPIRONOLACTONE [Concomitant]
  4. FUROSEMIDE [Concomitant]

REACTIONS (1)
  - RHINORRHOEA [None]
